FAERS Safety Report 7410498-2 (Version None)
Quarter: 2011Q2

REPORT INFORMATION
  Report Type: 
  Country: None (occurrence: None)
  Receive Date: 20110413
  Receipt Date: 20110404
  Transmission Date: 20111010
  Serious: No
  Sender: FDA-Public Use
  Company Number: US-BIOGENIDEC-2011BI007641

PATIENT
  Age: 52 Year
  Sex: Male

DRUGS (1)
  1. TYSABRI [Suspect]
     Indication: MULTIPLE SCLEROSIS
     Route: 042
     Dates: start: 20110104

REACTIONS (9)
  - RASH [None]
  - VISION BLURRED [None]
  - BALANCE DISORDER [None]
  - POLLAKIURIA [None]
  - POOR VENOUS ACCESS [None]
  - DRY SKIN [None]
  - BLEPHAROSPASM [None]
  - HEADACHE [None]
  - ALOPECIA [None]
